FAERS Safety Report 4407528-9 (Version None)
Quarter: 2004Q3

REPORT INFORMATION
  Report Type: 
  Country: None (occurrence: None)
  Receive Date: 20040721
  Receipt Date: 20040705
  Transmission Date: 20050211
  Serious: No
  Sender: FDA-Public Use
  Company Number: F04200400208

PATIENT
  Age: 78 Year
  Sex: Male

DRUGS (5)
  1. UROXATRAL [Suspect]
     Indication: BENIGN PROSTATIC HYPERPLASIA
     Dosage: 10 MG OD
     Route: 048
     Dates: start: 20040128, end: 20040326
  2. ACETYLSALICYLIC ACID SRT [Concomitant]
  3. ISOKET RETARD (ISOSORBIDE DINITRATE) [Concomitant]
  4. CAPTO COMP (CAPTOPRIL+ HYDROCHLOROTHIAZIDE) [Concomitant]
  5. CARVEDILOL [Concomitant]

REACTIONS (4)
  - INFLAMMATION [None]
  - NAIL BED INFECTION [None]
  - VISION BLURRED [None]
  - VISUAL ACUITY REDUCED [None]
